FAERS Safety Report 5981291-2 (Version None)
Quarter: 2008Q4

REPORT INFORMATION
  Report Type: 
  Country: None (occurrence: None)
  Receive Date: 20081126
  Receipt Date: 20081112
  Transmission Date: 20090506
  Serious: Yes (Other)
  Sender: FDA-Public Use
  Company Number: B0547386A

PATIENT
  Age: 36 Year
  Sex: Female

DRUGS (2)
  1. LAMIVUDINE [Suspect]
  2. CEFTRIAXONE [Suspect]

REACTIONS (17)
  - ABNORMAL BEHAVIOUR [None]
  - COAGULOPATHY [None]
  - COMA [None]
  - DISORIENTATION [None]
  - DRUG EXPOSURE DURING PREGNANCY [None]
  - GENERAL PHYSICAL HEALTH DETERIORATION [None]
  - GENITAL HAEMORRHAGE [None]
  - HEPATIC STEATOSIS [None]
  - HEPATITIS B [None]
  - HYPERBILIRUBINAEMIA [None]
  - INTRA-UTERINE DEATH [None]
  - JAUNDICE [None]
  - LEUKOCYTOSIS [None]
  - MALAISE [None]
  - PYREXIA [None]
  - SPEECH DISORDER [None]
  - UPPER GASTROINTESTINAL HAEMORRHAGE [None]
